FAERS Safety Report 10479524 (Version 1)
Quarter: 2014Q3

REPORT INFORMATION
  Report Type: Spontaneous
  Country: US (occurrence: None)
  Receive Date: 20140925
  Receipt Date: 20140925
  Transmission Date: 20150326
  Serious: Yes (Death, Other)
  Sender: FDA-Public Use
  Company Number: 2014STPI000444

PATIENT
  Age: 5 Year

DRUGS (8)
  1. METHOTREXATE SODIUM (METHOTREXATE SODIUM) [Suspect]
     Active Substance: METHOTREXATE SODIUM
     Indication: LYMPHOCYTIC LEUKAEMIA
     Route: 037
  2. PREDNISONE. [Suspect]
     Active Substance: PREDNISONE
     Indication: LYMPHOCYTIC LEUKAEMIA
  3. DOXORUBICIN HYDROCHLORIDE (DOXORUBICIN HYDROCHLORIDE) [Suspect]
     Active Substance: DOXORUBICIN HYDROCHLORIDE
     Indication: LYMPHOCYTIC LEUKAEMIA
  4. CYTARABINE (CYTARABINE) [Suspect]
     Active Substance: CYTARABINE
     Indication: LYMPHOCYTIC LEUKAEMIA
     Route: 037
  5. DECITABINE. [Suspect]
     Active Substance: DECITABINE
     Indication: LYMPHOCYTIC LEUKAEMIA
     Route: 042
  6. VORINOSTAT [Suspect]
     Active Substance: VORINOSTAT
     Indication: LYMPHOCYTIC LEUKAEMIA
     Route: 048
  7. ONCASPAR [Suspect]
     Active Substance: PEGASPARGASE
     Indication: LYMPHOCYTIC LEUKAEMIA
     Route: 042
  8. VINCRISTINE SULFATE (VINCRISTINE SULFATE) [Suspect]
     Active Substance: VINCRISTINE SULFATE
     Indication: LYMPHOCYTIC LEUKAEMIA

REACTIONS (1)
  - Haemorrhage [None]
